FAERS Safety Report 6725566-8 (Version None)
Quarter: 2010Q2

REPORT INFORMATION
  Report Type: 
  Country: None (occurrence: None)
  Receive Date: 20100514
  Receipt Date: 20100504
  Transmission Date: 20101027
  Serious: Yes (Hospitalization)
  Sender: FDA-Public Use
  Company Number: ES-PFIZER INC-2010056431

PATIENT
  Age: 74 Year
  Sex: Male

DRUGS (5)
  1. ALDACTONE [Suspect]
     Indication: CARDIAC FAILURE
     Dosage: 25 MG, 1X/DAY
     Route: 048
     Dates: start: 20080710, end: 20090615
  2. ENALAPRIL [Interacting]
     Indication: CARDIAC FAILURE
     Dosage: 10 MG, 1X/DAY
     Route: 048
     Dates: end: 20090615
  3. DEFERASIROX [Interacting]
     Indication: CARDIAC FAILURE
     Dosage: 125 MG, UNK
     Route: 048
     Dates: start: 20090531, end: 20090615
  4. HIDROSALURETIL [Interacting]
     Indication: CARDIAC FAILURE
     Dosage: 50 MG, 1X/DAY
     Route: 048
     Dates: start: 20080801, end: 20090615
  5. SEGURIL [Interacting]
     Indication: CARDIAC FAILURE
     Dosage: 40 MG, 2X/DAY
     Route: 048
     Dates: end: 20000615

REACTIONS (2)
  - DRUG INTERACTION [None]
  - RENAL FAILURE ACUTE [None]
